FAERS Safety Report 5935453-0 (Version None)
Quarter: 2008Q4

REPORT INFORMATION
  Report Type: 
  Country: None (occurrence: None)
  Receive Date: 20081030
  Receipt Date: 20081002
  Transmission Date: 20090506
  Serious: No
  Sender: FDA-Public Use
  Company Number: US-BAYER-200713532BCC

PATIENT
  Age: 64 Year
  Sex: Male
  Weight: 98 kg

DRUGS (3)
  1. ALEVE [Suspect]
     Indication: BACK PAIN
     Dosage: TOTAL DAILY DOSE: 1760 MG  UNIT DOSE: 220 MG
     Route: 048
     Dates: start: 20071001
  2. ZOCOR [Concomitant]
  3. DYAZIDE [Concomitant]

REACTIONS (10)
  - ABDOMINAL DISCOMFORT [None]
  - ABDOMINAL PAIN UPPER [None]
  - ASTHENIA [None]
  - DAYDREAMING [None]
  - DIARRHOEA [None]
  - DIZZINESS [None]
  - EYE PAIN [None]
  - OCULAR HYPERAEMIA [None]
  - PAIN [None]
  - POOR QUALITY SLEEP [None]
